FAERS Safety Report 20811708 (Version 1)
Quarter: 2022Q2

REPORT INFORMATION
  Report Type: Report from Study
  Country: US (occurrence: US)
  Receive Date: 20220510
  Receipt Date: 20220510
  Transmission Date: 20220721
  Serious: Yes (Other)
  Sender: FDA-Public Use
  Company Number: US-JNJFOC-20220121126

PATIENT
  Age: 71 Year
  Sex: Female

DRUGS (1)
  1. MACITENTAN [Suspect]
     Active Substance: MACITENTAN
     Indication: Pulmonary arterial hypertension
     Route: 048
     Dates: start: 2020

REACTIONS (10)
  - Pneumonia bacterial [Recovered/Resolved]
  - Ascites [Recovering/Resolving]
  - Peripheral swelling [Recovering/Resolving]
  - Insomnia [Not Recovered/Not Resolved]
  - Fatigue [Not Recovered/Not Resolved]
  - Chest pain [Not Recovered/Not Resolved]
  - Upper-airway cough syndrome [Recovering/Resolving]
  - Dyspnoea [Recovering/Resolving]
  - Anaemia [Recovered/Resolved]
  - Vein disorder [Unknown]

NARRATIVE: CASE EVENT DATE: 20220201
